FAERS Safety Report 4980944-2 (Version None)
Quarter: 2006Q2

REPORT INFORMATION
  Report Type: 
  Country: None (occurrence: None)
  Receive Date: 20060418
  Receipt Date: 20060410
  Transmission Date: 20061013
  Serious: Yes (Hospitalization, Disabling)
  Sender: FDA-Public Use
  Company Number: 218787

PATIENT
  Age: 68 Year
  Sex: Female
  Weight: 81 kg

DRUGS (11)
  1. AVASTIN [Suspect]
     Indication: PANCREATIC CARCINOMA
     Dosage: 15 MG/M2, Q3W, INTRAVENOUS
     Route: 042
     Dates: start: 20050819
  2. CAPECITABINE (CAPECITABINE) [Suspect]
     Indication: PANCREATIC CARCINOMA
     Dosage: 650 MG/M2, BID
     Dates: start: 20050819
  3. GEMCITABINE [Suspect]
     Indication: PANCREATIC CARCINOMA
     Dosage: 2000 MG, 1/WEEK, INTRAVENOUS
     Route: 042
     Dates: start: 20050819
  4. AVAPRO [Concomitant]
  5. ATENOL (ATENOLOL) [Concomitant]
  6. VIOKASE (PANCREATIN) [Concomitant]
  7. PROTONIX [Concomitant]
  8. COMPAZINE [Concomitant]
  9. ASPIRIN [Concomitant]
  10. LORTAB [Concomitant]
  11. LOVENOX [Concomitant]

REACTIONS (13)
  - BRAIN STEM INFARCTION [None]
  - CEREBELLAR INFARCTION [None]
  - CRANIAL NERVE PARALYSIS [None]
  - DIZZINESS [None]
  - FALL [None]
  - HEMIANOPIA HOMONYMOUS [None]
  - LACUNAR INFARCTION [None]
  - MALIGNANT OMENTUM NEOPLASM [None]
  - METASTASES TO PERITONEUM [None]
  - PANCREATIC CARCINOMA METASTATIC [None]
  - REVERSIBLE POSTERIOR LEUKOENCEPHALOPATHY SYNDROME [None]
  - SPLENIC VEIN THROMBOSIS [None]
  - VISION BLURRED [None]
